FAERS Safety Report 6298214-1 (Version None)
Quarter: 2009Q3

REPORT INFORMATION
  Report Type: 
  Country: None (occurrence: None)
  Receive Date: 20090805
  Receipt Date: 20090729
  Transmission Date: 20100115
  Serious: Yes (Other)
  Sender: FDA-Public Use
  Company Number: US-AVENTIS-200916693US

PATIENT
  Sex: Female

DRUGS (4)
  1. LANTUS [Suspect]
     Dosage: DOSE: 44-60 UNITS
     Route: 058
     Dates: start: 20050101
  2. OPTICLIK GREY [Suspect]
     Dates: start: 20060101
  3. NOVOLOG [Concomitant]
     Dosage: DOSE: UNK
  4. METFORMIN [Concomitant]
     Dosage: DOSE: UNK

REACTIONS (3)
  - ACCIDENTAL NEEDLE STICK [None]
  - DIABETIC RETINOPATHY [None]
  - VISUAL ACUITY REDUCED [None]
